FAERS Safety Report 25771690 (Version 3)
Quarter: 2025Q4

REPORT INFORMATION
  Report Type: Spontaneous
  Country: US (occurrence: US)
  Receive Date: 20250908
  Receipt Date: 20251030
  Transmission Date: 20260117
  Serious: Yes (Hospitalization, Other)
  Sender: CATALYST PHARMA
  Company Number: US-CATALYST PHARMACEUTICALS, INC-US-CATA-25-01306

PATIENT
  Age: 64 Year
  Sex: Male
  Weight: 77.098 kg

DRUGS (5)
  1. FIRDAPSE [Suspect]
     Active Substance: AMIFAMPRIDINE PHOSPHATE
     Indication: Myasthenic syndrome
     Dosage: TITRATION: ONE (10 MG) TABLET THREE TIMES A DAY FOR 30 DAYS, THEN INCREASE BY 5 MG EVERY 5 DAYS, UNT
     Route: 048
     Dates: start: 20240824
  2. FIRDAPSE [Suspect]
     Active Substance: AMIFAMPRIDINE PHOSPHATE
     Dosage: ONE (10 MG) TO TWO (10 MG) TABLETS THREE TIMES A DAY
     Route: 048
     Dates: start: 20250522, end: 2025
  3. FIRDAPSE [Suspect]
     Active Substance: AMIFAMPRIDINE PHOSPHATE
     Dosage: TWO (10 MG) TABLETS THREE TIMES A DAY
     Route: 048
     Dates: start: 2025, end: 2025
  4. FIRDAPSE [Suspect]
     Active Substance: AMIFAMPRIDINE PHOSPHATE
     Dosage: TWO (10 MG) TABLETS FIVE TIMES PER DAY
     Route: 048
     Dates: start: 2025
  5. TECENTRIQ [Suspect]
     Active Substance: ATEZOLIZUMAB
     Indication: Immune enhancement therapy
     Dosage: UNK, UNK
     Route: 065

REACTIONS (4)
  - Myasthenic syndrome [Not Recovered/Not Resolved]
  - Condition aggravated [Not Recovered/Not Resolved]
  - Spinal operation [Unknown]
  - Drug ineffective [Unknown]

NARRATIVE: CASE EVENT DATE: 20250401
